FAERS Safety Report 23376990 (Version 2)
Quarter: 2024Q1

REPORT INFORMATION
  Report Type: Spontaneous
  Country: US (occurrence: US)
  Receive Date: 20240108
  Receipt Date: 20240112
  Transmission Date: 20240410
  Serious: Yes (Other)
  Sender: FDA-Public Use
  Company Number: US-BRISTOL-MYERS SQUIBB COMPANY-2024-002416

PATIENT
  Age: 77 Year
  Sex: Female
  Weight: 59.8 kg

DRUGS (44)
  1. LENALIDOMIDE [Suspect]
     Active Substance: LENALIDOMIDE
     Indication: Plasma cell myeloma
     Dosage: FREQUENCY: 21, REDUCED DOSE OF REVLIMID- VRD
     Route: 048
     Dates: start: 20200212
  2. LENALIDOMIDE [Suspect]
     Active Substance: LENALIDOMIDE
     Dosage: VRD
     Route: 048
     Dates: start: 20210315, end: 202105
  3. LENALIDOMIDE [Suspect]
     Active Substance: LENALIDOMIDE
     Dosage: DRD
     Route: 048
     Dates: start: 202109
  4. LENALIDOMIDE [Suspect]
     Active Substance: LENALIDOMIDE
     Dosage: DRD
     Route: 048
     Dates: start: 202305
  5. VELCADE [Suspect]
     Active Substance: BORTEZOMIB
     Indication: Plasma cell myeloma
     Dosage: VRD
     Dates: start: 20200212
  6. VELCADE [Suspect]
     Active Substance: BORTEZOMIB
     Dosage: MAINTENANCE VELCADE
     Dates: start: 20200805
  7. VELCADE [Suspect]
     Active Substance: BORTEZOMIB
     Dosage: VRD
     Dates: start: 20210315, end: 202105
  8. DEXAMETHASONE [Suspect]
     Active Substance: DEXAMETHASONE
     Indication: Plasma cell myeloma
     Dosage: VRD
     Dates: start: 20200212
  9. DEXAMETHASONE [Suspect]
     Active Substance: DEXAMETHASONE
     Dosage: VRD
     Dates: start: 20210315, end: 202105
  10. DEXAMETHASONE [Suspect]
     Active Substance: DEXAMETHASONE
     Dosage: DRD
     Dates: start: 202109, end: 202208
  11. DARATUMUMAB [Suspect]
     Active Substance: DARATUMUMAB
     Indication: Plasma cell myeloma
     Dosage: DRD
     Route: 041
     Dates: start: 202109
  12. GADAVIST [Concomitant]
     Active Substance: GADOBUTROL
     Indication: Product used for unknown indication
     Dosage: FREQUENCY: ONCE
     Route: 042
     Dates: start: 20231229, end: 20231229
  13. CYANOCOBALAMIN [Concomitant]
     Active Substance: CYANOCOBALAMIN
     Indication: Product used for unknown indication
     Dosage: FREQUENCY: ONCE
     Route: 030
     Dates: start: 20230614, end: 20230614
  14. CYANOCOBALAMIN [Concomitant]
     Active Substance: CYANOCOBALAMIN
     Dosage: FREQUENCY: ONCE
     Route: 030
     Dates: start: 20230712, end: 20230726
  15. CYANOCOBALAMIN [Concomitant]
     Active Substance: CYANOCOBALAMIN
     Dosage: FREQUENCY: ONCE
     Route: 030
     Dates: start: 20230809, end: 20230823
  16. CYANOCOBALAMIN [Concomitant]
     Active Substance: CYANOCOBALAMIN
     Dosage: FREQUENCY: ONCE
     Route: 030
     Dates: start: 20230906, end: 20230920
  17. CYANOCOBALAMIN [Concomitant]
     Active Substance: CYANOCOBALAMIN
     Dosage: FREQUENCY: ONCE
     Route: 030
     Dates: start: 20231004, end: 20231018
  18. CYANOCOBALAMIN [Concomitant]
     Active Substance: CYANOCOBALAMIN
     Dosage: FREQUENCY: ONCE
     Route: 030
     Dates: start: 20231101, end: 20231115
  19. CYANOCOBALAMIN [Concomitant]
     Active Substance: CYANOCOBALAMIN
     Dosage: FREQUENCY: ONCE
     Route: 030
     Dates: start: 20231129, end: 20231213
  20. CYANOCOBALAMIN [Concomitant]
     Active Substance: CYANOCOBALAMIN
     Dosage: FREQUENCY: ONCE?1000 MCG /ML INJECTABLE SOLUTION
     Route: 030
     Dates: start: 20231227, end: 20231227
  21. DARATUMUMAB\HYALURONIDASE-FIHJ [Concomitant]
     Active Substance: DARATUMUMAB\HYALURONIDASE-FIHJ
     Indication: Product used for unknown indication
     Dosage: DAY OF TX
     Route: 058
     Dates: start: 20230712, end: 20230726
  22. DARATUMUMAB\HYALURONIDASE-FIHJ [Concomitant]
     Active Substance: DARATUMUMAB\HYALURONIDASE-FIHJ
     Dosage: DAY OF TX
     Route: 058
     Dates: start: 20230809, end: 20230823
  23. DARATUMUMAB\HYALURONIDASE-FIHJ [Concomitant]
     Active Substance: DARATUMUMAB\HYALURONIDASE-FIHJ
     Dosage: DAY OF TX
     Route: 058
     Dates: start: 20230906, end: 20230920
  24. DARATUMUMAB\HYALURONIDASE-FIHJ [Concomitant]
     Active Substance: DARATUMUMAB\HYALURONIDASE-FIHJ
     Dosage: DAY OF TX
     Route: 058
     Dates: start: 20231004, end: 20231018
  25. DARATUMUMAB\HYALURONIDASE-FIHJ [Concomitant]
     Active Substance: DARATUMUMAB\HYALURONIDASE-FIHJ
     Dosage: DAY OF TX
     Route: 058
     Dates: start: 20231101, end: 20231115
  26. DARATUMUMAB\HYALURONIDASE-FIHJ [Concomitant]
     Active Substance: DARATUMUMAB\HYALURONIDASE-FIHJ
     Dosage: DAY OF TX
     Route: 058
     Dates: start: 20231129, end: 20231213
  27. DARATUMUMAB\HYALURONIDASE-FIHJ [Concomitant]
     Active Substance: DARATUMUMAB\HYALURONIDASE-FIHJ
     Dosage: DAY OF TX
     Route: 058
     Dates: start: 20231227, end: 20231227
  28. ONDANSETRON [Concomitant]
     Active Substance: ONDANSETRON
     Indication: Nausea
     Dosage: DAY OF TX PRN, PRN, X 2 DOSES
     Route: 042
     Dates: start: 20231227, end: 20231228
  29. ONDANSETRON [Concomitant]
     Active Substance: ONDANSETRON
     Dosage: PRN NAUSEA
     Route: 048
  30. VALIUM [Concomitant]
     Active Substance: DIAZEPAM
     Indication: Anxiety
     Dosage: TAKE ONE TAB 45 MINS BEFORE PROCEDURE, 30-45 MINS PRIOR TO SCAN. MAY REPEAT 10 MINS BEFORE PROCEDURE
     Route: 048
  31. KEPPRA [Concomitant]
     Active Substance: LEVETIRACETAM
     Indication: Seizure
     Dosage: 1 TABS, ORAL, BID, WEIGHT DOSING
     Route: 048
  32. ACYCLOVIR [Concomitant]
     Active Substance: ACYCLOVIR
     Indication: Prophylaxis
     Route: 048
  33. POTASSIUM CHLORIDE EXTENDED RELEASE [Concomitant]
     Active Substance: POTASSIUM CHLORIDE
     Indication: Hypokalaemia
     Dosage: EQV-K-TAB
     Route: 048
  34. FLUDROCORTISONE [Concomitant]
     Active Substance: FLUDROCORTISONE
     Indication: Product used for unknown indication
     Route: 048
  35. FLUDROCORTISONE [Concomitant]
     Active Substance: FLUDROCORTISONE
  36. ASPIRIN [Concomitant]
     Active Substance: ASPIRIN
     Indication: Product used for unknown indication
     Route: 048
  37. MAGNESIUM OXIDE [Concomitant]
     Active Substance: MAGNESIUM OXIDE
     Indication: Product used for unknown indication
     Route: 048
  38. CITALOPRAM [Concomitant]
     Active Substance: CITALOPRAM HYDROBROMIDE
     Indication: Product used for unknown indication
     Route: 048
  39. TRAZODONE [Concomitant]
     Active Substance: TRAZODONE HYDROCHLORIDE
     Indication: Product used for unknown indication
     Dosage: AT BEDTIME
     Route: 048
  40. PANTOPRAZOLE [Concomitant]
     Active Substance: PANTOPRAZOLE
     Indication: Product used for unknown indication
     Dosage: DELAYED RELEASE
     Route: 048
  41. BACTRIM [Concomitant]
     Active Substance: SULFAMETHOXAZOLE\TRIMETHOPRIM
     Indication: Prophylaxis
  42. UNSPECIFIED INGREDIENT [Concomitant]
     Active Substance: UNSPECIFIED INGREDIENT
     Indication: Osteopenia
  43. CALCIUM [Concomitant]
     Active Substance: CALCIUM
     Indication: Osteopenia
     Dosage: 1200 TO 1500 MG DAILY
  44. ERGOCALCIFEROL [Concomitant]
     Active Substance: ERGOCALCIFEROL
     Indication: Osteopenia
     Dosage: 800-1000 IU DAILY

REACTIONS (19)
  - Back pain [Not Recovered/Not Resolved]
  - Decreased appetite [Unknown]
  - Weight decreased [Unknown]
  - Rhinorrhoea [Unknown]
  - Nasal congestion [Unknown]
  - Rash [Unknown]
  - Hypercalcaemia [Unknown]
  - Renal failure [Unknown]
  - Anaemia [Unknown]
  - Bone lesion [Unknown]
  - Bundle branch block right [Unknown]
  - Hypotension [Recovering/Resolving]
  - Hypoaesthesia [Unknown]
  - Acute kidney injury [Unknown]
  - Plasma cell myeloma [Unknown]
  - Gallbladder disorder [Unknown]
  - Abdominal distension [Recovering/Resolving]
  - Diarrhoea [Recovering/Resolving]
  - Asthenia [Unknown]
